FAERS Safety Report 19111165 (Version 1)
Quarter: 2021Q2

REPORT INFORMATION
  Report Type: Spontaneous
  Country: ES (occurrence: ES)
  Receive Date: 20210409
  Receipt Date: 20210409
  Transmission Date: 20210717
  Serious: Yes (Life-Threatening, Hospitalization, Other)
  Sender: FDA-Public Use
  Company Number: ES-ALKEM LABORATORIES LIMITED-ES-ALKEM-2021-01803

PATIENT
  Age: 80 Year

DRUGS (12)
  1. DOXYCYCLINE. [Concomitant]
     Active Substance: DOXYCYCLINE
     Indication: MUSCLE ABSCESS
  2. LINEZOLID. [Suspect]
     Active Substance: LINEZOLID
     Indication: MUSCLE ABSCESS
  3. LINEZOLID. [Suspect]
     Active Substance: LINEZOLID
     Indication: PSOAS ABSCESS
  4. LINEZOLID. [Suspect]
     Active Substance: LINEZOLID
     Indication: SEPSIS
  5. FOSFOMYCIN [Concomitant]
     Active Substance: FOSFOMYCIN
     Indication: SEPSIS
  6. DOXYCYCLINE. [Concomitant]
     Active Substance: DOXYCYCLINE
     Indication: URINARY TRACT INFECTION
     Dosage: UNK
     Route: 048
  7. DOXYCYCLINE. [Concomitant]
     Active Substance: DOXYCYCLINE
     Indication: PSOAS ABSCESS
  8. DOXYCYCLINE. [Concomitant]
     Active Substance: DOXYCYCLINE
     Indication: SEPSIS
  9. FOSFOMYCIN [Concomitant]
     Active Substance: FOSFOMYCIN
     Indication: MUSCLE ABSCESS
  10. FOSFOMYCIN [Concomitant]
     Active Substance: FOSFOMYCIN
     Indication: URINARY TRACT INFECTION
     Dosage: UNK
     Route: 048
  11. LINEZOLID. [Suspect]
     Active Substance: LINEZOLID
     Indication: URINARY TRACT INFECTION
     Dosage: UNK
     Route: 048
  12. FOSFOMYCIN [Concomitant]
     Active Substance: FOSFOMYCIN
     Indication: PSOAS ABSCESS

REACTIONS (5)
  - Hyperlactacidaemia [Unknown]
  - Pancytopenia [Recovered/Resolved]
  - Vomiting [Unknown]
  - Illness [Unknown]
  - Atrial fibrillation [Unknown]
